FAERS Safety Report 9437701 (Version 2)
Quarter: 2014Q1

REPORT INFORMATION
  Report Type: Spontaneous
  Country: US (occurrence: US)
  Receive Date: 20130802
  Receipt Date: 20140109
  Transmission Date: 20141002
  Serious: Yes (Death, Hospitalization)
  Sender: FDA-Public Use
  Company Number: US-B.I. PHARMACEUTICALS,INC./RIDGEFIELD-2013-BI-22823BP

PATIENT
  Age: 84 Year
  Sex: Female
  Weight: 68.95 kg

DRUGS (14)
  1. PRADAXA [Suspect]
     Dates: start: 20110103, end: 20120816
  2. CYMBALTA [Concomitant]
  3. ARICEPT [Concomitant]
  4. OMEPRAZOLE [Concomitant]
  5. LASIX [Concomitant]
  6. DIGOXIN [Concomitant]
  7. GLIPIZIDE [Concomitant]
  8. EVISTA [Concomitant]
  9. CRESTOR [Concomitant]
  10. CARDIZEM [Concomitant]
  11. METFORMIN [Concomitant]
  12. LANTUS [Concomitant]
  13. ASA [Concomitant]
  14. SYNTHROID [Concomitant]

REACTIONS (2)
  - Subdural haematoma [Fatal]
  - Fall [Unknown]
